FAERS Safety Report 14481026 (Version 1)
Quarter: 2018Q1

REPORT INFORMATION
  Report Type: Spontaneous
  Country: CN (occurrence: CN)
  Receive Date: 20180202
  Receipt Date: 20180202
  Transmission Date: 20180509
  Serious: Yes (Other)
  Sender: FDA-Public Use
  Company Number: CN-GLAXOSMITHKLINE-CN2018GSK017097

PATIENT
  Age: 12 Month
  Sex: Female
  Weight: 9 kg

DRUGS (2)
  1. VENTOLIN [Suspect]
     Active Substance: ALBUTEROL SULFATE
     Indication: WHEEZING
     Dosage: 1.25 ML, UNK
     Route: 055
     Dates: start: 20171028, end: 20171028
  2. ACETYLCYSTEINE. [Concomitant]
     Active Substance: ACETYLCYSTEINE
     Indication: WHEEZING
     Dosage: UNK
     Route: 055
     Dates: start: 20171028, end: 20171028

REACTIONS (5)
  - Bronchitis [Unknown]
  - Breath sounds abnormal [Recovering/Resolving]
  - Cough [Recovering/Resolving]
  - Stridor [Recovering/Resolving]
  - Tachypnoea [Recovering/Resolving]

NARRATIVE: CASE EVENT DATE: 20171028
